FAERS Safety Report 15105973 (Version 2)
Quarter: 2018Q3

REPORT INFORMATION
  Report Type: Report from Study
  Country: US (occurrence: US)
  Receive Date: 20180704
  Receipt Date: 20180726
  Transmission Date: 20181010
  Serious: No
  Sender: FDA-Public Use
  Company Number: US-AMGEN-USASL2018087868

PATIENT
  Age: 62 Year
  Sex: Female

DRUGS (4)
  1. ENBREL [Suspect]
     Active Substance: ETANERCEPT
     Indication: SYSTEMIC LUPUS ERYTHEMATOSUS
  2. ENBREL [Suspect]
     Active Substance: ETANERCEPT
     Indication: CONNECTIVE TISSUE DISORDER
  3. PREDNISONE. [Concomitant]
     Active Substance: PREDNISONE
     Dosage: UNK
  4. ENBREL [Suspect]
     Active Substance: ETANERCEPT
     Indication: RHEUMATOID ARTHRITIS
     Dosage: 50 MG, QWK
     Route: 065
     Dates: start: 20180604, end: 20180625

REACTIONS (15)
  - Eye pain [Recovering/Resolving]
  - Drug ineffective [Unknown]
  - Nodule [Recovered/Resolved]
  - Sleep disorder [Not Recovered/Not Resolved]
  - Injection site erythema [Not Recovered/Not Resolved]
  - Abnormal dreams [Unknown]
  - Fatigue [Unknown]
  - Injection site discolouration [Unknown]
  - Arthralgia [Recovering/Resolving]
  - Acne [Unknown]
  - Wrong technique in product usage process [Unknown]
  - Foreign body sensation in eyes [Unknown]
  - Injection site pruritus [Recovered/Resolved]
  - Injection site pain [Unknown]
  - Injection site haemorrhage [Unknown]

NARRATIVE: CASE EVENT DATE: 201806
